FAERS Safety Report 17723306 (Version 1)
Quarter: 2020Q2

REPORT INFORMATION
  Report Type: Spontaneous
  Country: US (occurrence: US)
  Receive Date: 20200428
  Receipt Date: 20200428
  Transmission Date: 20200714
  Serious: Yes (Other)
  Sender: FDA-Public Use
  Company Number: None

PATIENT
  Age: 56 Year
  Sex: Female
  Weight: 92.99 kg

DRUGS (1)
  1. NEUTROGENA MAKEUP REMOVER CLEANSING TOWEL 25S REFF UNSPECIFIED [Suspect]
     Active Substance: COSMETICS
     Route: 061

REACTIONS (8)
  - Exophthalmos [None]
  - Application site exfoliation [None]
  - Skin erosion [None]
  - Periorbital swelling [None]
  - Burns second degree [None]
  - Chemical burn [None]
  - Application site reaction [None]
  - Paraesthesia [None]
